FAERS Safety Report 21540731 (Version 1)
Quarter: 2022Q4

REPORT INFORMATION
  Report Type: Report from Study
  Country: US (occurrence: US)
  Receive Date: 20221102
  Receipt Date: 20221102
  Transmission Date: 20230112
  Serious: No
  Sender: FDA-Public Use
  Company Number: US-ABBVIE-4149141

PATIENT
  Sex: Female

DRUGS (1)
  1. HUMIRA [Suspect]
     Active Substance: ADALIMUMAB
     Indication: Psoriatic arthropathy
     Dosage: STRENGTH: 40 MG
     Route: 058
     Dates: start: 20211104

REACTIONS (6)
  - Breast cyst [Unknown]
  - Fatigue [Unknown]
  - Feeling hot [Unknown]
  - Polyp [Recovering/Resolving]
  - General physical health deterioration [Unknown]
  - Breast disorder [Unknown]
